FAERS Safety Report 8974784 (Version 1)
Quarter: 2012Q4

REPORT INFORMATION
  Report Type: Report from Study
  Country: DE (occurrence: DE)
  Receive Date: 20121219
  Receipt Date: 20121219
  Transmission Date: 20130627
  Serious: Yes (Hospitalization)
  Sender: FDA-Public Use
  Company Number: DE-BAXTER-2012BAX027213

PATIENT
  Age: 58 Year
  Sex: Female
  Weight: 74 kg

DRUGS (3)
  1. ENDOXAN 1G [Suspect]
     Indication: MALIGNANT BREAST NEOPLASM
     Route: 042
     Dates: start: 20090519
  2. BEVACIZUMAB [Suspect]
     Indication: MALIGNANT BREAST NEOPLASM
     Route: 042
     Dates: start: 20090519
  3. EPIRUBICIN [Suspect]
     Indication: MALIGNANT BREAST NEOPLASM
     Route: 042
     Dates: start: 20090519

REACTIONS (1)
  - Tonsillitis [Recovered/Resolved]
